FAERS Safety Report 9410426 (Version 1)
Quarter: 2013Q3

REPORT INFORMATION
  Report Type: Spontaneous
  Country: FR (occurrence: FR)
  Receive Date: 20130719
  Receipt Date: 20130719
  Transmission Date: 20140515
  Serious: Yes (Hospitalization)
  Sender: FDA-Public Use
  Company Number: FR-VIIV HEALTHCARE LIMITED-B0907413A

PATIENT
  Age: 47 Year
  Sex: Male

DRUGS (14)
  1. EPIVIR [Suspect]
     Indication: HIV INFECTION
     Route: 048
     Dates: start: 20130224, end: 20130227
  2. PIPERACILLINE [Suspect]
     Route: 065
     Dates: start: 20130216, end: 20130227
  3. ISENTRESS [Suspect]
     Indication: HIV INFECTION
     Route: 048
     Dates: start: 20130224, end: 20130227
  4. KALETRA [Suspect]
     Indication: HIV INFECTION
     Route: 048
     Dates: start: 20130224, end: 20130227
  5. CEFTRIAXONE [Suspect]
     Indication: PNEUMONIA PNEUMOCOCCAL
     Route: 065
     Dates: start: 20130212
  6. SPIRAMYCINE [Suspect]
     Indication: PNEUMONIA PNEUMOCOCCAL
     Route: 065
     Dates: start: 20130212
  7. TAZOCILLINE [Suspect]
     Route: 065
     Dates: start: 20130214, end: 20130216
  8. AMIKACINE [Suspect]
     Route: 065
     Dates: start: 20130214, end: 20130216
  9. NOZINAN [Suspect]
     Indication: DELIRIUM TREMENS
     Route: 065
     Dates: start: 20130214, end: 20130227
  10. BACTRIM [Suspect]
     Route: 065
     Dates: start: 20130214, end: 20130215
  11. VIREAD [Suspect]
     Indication: HIV INFECTION
     Route: 048
     Dates: start: 20130224, end: 20130227
  12. ADRENALINE [Concomitant]
     Indication: RIGHT VENTRICULAR FAILURE
     Dates: start: 20130214
  13. NORADRENALINE [Concomitant]
     Indication: RIGHT VENTRICULAR FAILURE
     Dates: start: 20130214
  14. VITAMIN [Concomitant]
     Indication: DELIRIUM TREMENS
     Dates: start: 20130214

REACTIONS (3)
  - Stevens-Johnson syndrome [Recovered/Resolved]
  - Pyrexia [Recovered/Resolved]
  - Dry skin [Recovered/Resolved]
